FAERS Safety Report 4808734-1 (Version None)
Quarter: 2005Q4

REPORT INFORMATION
  Report Type: 
  Country: None (occurrence: None)
  Receive Date: 20051021
  Receipt Date: 20040304
  Transmission Date: 20060501
  Serious: Yes (Other)
  Sender: FDA-Public Use
  Company Number: EWC040338414

PATIENT
  Age: 23 Year
  Sex: Male
  Weight: 75 kg

DRUGS (2)
  1. ZYPREXA [Suspect]
     Indication: PSYCHOTIC DISORDER
     Dosage: 10 MG/1 DAY
     Dates: start: 20030801, end: 20040323
  2. DEPAKIN (VALPROATE SODIUM) [Concomitant]

REACTIONS (3)
  - BRADYCARDIA [None]
  - LYMPHOCYTOSIS [None]
  - WEIGHT INCREASED [None]
